FAERS Safety Report 8386459-6 (Version None)
Quarter: 2012Q2

REPORT INFORMATION
  Report Type: 
  Country: None (occurrence: None)
  Receive Date: 20120523
  Receipt Date: 20120515
  Transmission Date: 20120825
  Serious: Yes (Hospitalization)
  Sender: FDA-Public Use
  Company Number: 2012-001855

PATIENT
  Age: 69 Year
  Sex: Female

DRUGS (11)
  1. LIBRAX [Concomitant]
  2. FISH OIL (FISH OIL) [Concomitant]
  3. MAALOX (ALUMINIUM HYDROXIDE, MAGNESIUM HYDROXIDE) [Concomitant]
  4. ACIDOPHILUS (LACTOBACILLUS ACIDOPHILUS) [Concomitant]
  5. ACTONEL [Suspect]
     Indication: OSTEOPOROSIS
     Dosage: 150 MG ONCE MONTHLY, ORAL
     Route: 048
     Dates: start: 20091001, end: 20120501
  6. HYOSCINE HBR HYT [Concomitant]
  7. VITAMIN B12 [Concomitant]
  8. LEVOTHYROXINE SODIUM [Concomitant]
  9. CYTOMEL [Concomitant]
  10. NEXIUM [Concomitant]
  11. ZANTAC [Concomitant]

REACTIONS (5)
  - DYSPEPSIA [None]
  - COSTOCHONDRITIS [None]
  - OESOPHAGITIS [None]
  - INAPPROPRIATE SCHEDULE OF DRUG ADMINISTRATION [None]
  - CHEST PAIN [None]
